FAERS Safety Report 25669646 (Version 1)
Quarter: 2025Q3

REPORT INFORMATION
  Report Type: Spontaneous
  Country: CN (occurrence: CN)
  Receive Date: 20250812
  Receipt Date: 20250812
  Transmission Date: 20251021
  Serious: Yes (Other)
  Sender: BAXTER
  Company Number: None

PATIENT
  Age: 51 Year
  Sex: Female
  Weight: 62.1 kg

DRUGS (4)
  1. CYCLOPHOSPHAMIDE [Suspect]
     Active Substance: CYCLOPHOSPHAMIDE
     Indication: Invasive breast carcinoma
     Dosage: 0.94 G, QD WITH 0.9% SODIUM CHLORIDE 100 ML
     Route: 041
     Dates: start: 20250724, end: 20250724
  2. DOXORUBICIN HYDROCHLORIDE [Suspect]
     Active Substance: DOXORUBICIN HYDROCHLORIDE
     Indication: Invasive breast carcinoma
     Dosage: 50 MG (SELF PREPARED), QD WITH 5% GLUCOSE 250 ML
     Route: 041
     Dates: start: 20250724, end: 20250724
  3. SODIUM CHLORIDE [Suspect]
     Active Substance: SODIUM CHLORIDE
     Indication: Medication dilution
     Dosage: 100 ML, QD WITH CYCLOPHOSPHAMIDE
     Route: 041
     Dates: start: 20250724, end: 20250724
  4. DEXTROSE [Suspect]
     Active Substance: DEXTROSE MONOHYDRATE
     Indication: Medication dilution
     Dosage: 250 ML, QD WITH LIPOSOMAL DOXORUBICIN
     Route: 041
     Dates: start: 20250724, end: 20250724

REACTIONS (4)
  - Anxiety [Unknown]
  - Nausea [Unknown]
  - Vomiting [Unknown]
  - Dizziness [Unknown]

NARRATIVE: CASE EVENT DATE: 20250726
